FAERS Safety Report 24935039 (Version 1)
Quarter: 2025Q1

REPORT INFORMATION
  Report Type: Report from Study
  Country: PK (occurrence: PK)
  Receive Date: 20250206
  Receipt Date: 20250206
  Transmission Date: 20250409
  Serious: Yes (Death)
  Sender: ROCHE
  Company Number: PK-ROCHE-10000199810

PATIENT
  Age: 73 Year
  Sex: Male

DRUGS (2)
  1. AVASTIN [Suspect]
     Active Substance: BEVACIZUMAB
     Indication: Hepatocellular carcinoma
     Route: 040
     Dates: start: 20240304
  2. TECENTRIQ [Suspect]
     Active Substance: ATEZOLIZUMAB
     Indication: Hepatocellular carcinoma
     Route: 040
     Dates: start: 20240304

REACTIONS (1)
  - Hepatic failure [Fatal]
